FAERS Safety Report 6135238-9 (Version None)
Quarter: 2009Q1

REPORT INFORMATION
  Report Type: 
  Country: None (occurrence: None)
  Receive Date: 20090327
  Receipt Date: 20090317
  Transmission Date: 20090719
  Serious: Yes (Hospitalization)
  Sender: FDA-Public Use
  Company Number: US-PFIZER INC-2008082644

PATIENT
  Sex: Male
  Weight: 77.6 kg

DRUGS (20)
  1. MARAVIROC [Suspect]
     Indication: HIV INFECTION
     Dosage: 300 MG, 2X/DAY
     Dates: start: 20080729, end: 20080905
  2. ISENTRESS [Concomitant]
     Dosage: 400 MG, 2X/DAY
     Route: 048
     Dates: start: 20080729, end: 20080905
  3. TRUVADA [Concomitant]
  4. NEURONTIN [Concomitant]
     Route: 048
  5. VALTREX [Concomitant]
     Route: 048
  6. LOVASTATIN [Concomitant]
     Route: 048
  7. LEXAPRO [Concomitant]
     Route: 048
  8. KLONOPIN [Concomitant]
     Route: 048
  9. STADOL [Concomitant]
     Route: 045
  10. MARINOL [Concomitant]
     Route: 048
  11. ALTACE [Concomitant]
     Route: 048
  12. POTASSIUM CHLORIDE [Concomitant]
     Route: 048
  13. ACIPHEX [Concomitant]
     Route: 048
  14. REMERON [Concomitant]
     Route: 048
  15. REQUIP [Concomitant]
     Route: 048
  16. ADVAIR HFA [Concomitant]
     Route: 048
  17. ASPIRIN [Concomitant]
     Route: 048
  18. ATIVAN [Concomitant]
     Route: 048
  19. CREON [Concomitant]
     Route: 048
  20. EPIVIR [Concomitant]

REACTIONS (1)
  - STEVENS-JOHNSON SYNDROME [None]
